FAERS Safety Report 12159051 (Version 1)
Quarter: 2016Q1

REPORT INFORMATION
  Report Type: Spontaneous
  Country: US (occurrence: None)
  Receive Date: 20160307
  Receipt Date: 20160307
  Transmission Date: 20160526
  Serious: No
  Sender: FDA-Public Use
  Company Number: None

PATIENT
  Age: 30 Year
  Sex: Male
  Weight: 72.12 kg

DRUGS (3)
  1. ZYPREXA [Concomitant]
     Active Substance: OLANZAPINE
  2. INVEGA SUSTENNA [Suspect]
     Active Substance: PALIPERIDONE PALMITATE
     Indication: BIPOLAR DISORDER
     Dates: start: 20110401, end: 20160207
  3. INVEGA SUSTENNA [Suspect]
     Active Substance: PALIPERIDONE PALMITATE
     Indication: SCHIZOPHRENIA
     Dates: start: 20110401, end: 20160207

REACTIONS (8)
  - Haematochezia [None]
  - Chest pain [None]
  - Nervousness [None]
  - Muscle twitching [None]
  - Tremor [None]
  - Constipation [None]
  - Vision blurred [None]
  - Heart rate increased [None]

NARRATIVE: CASE EVENT DATE: 20151005
